FAERS Safety Report 6735168-5 (Version None)
Quarter: 2010Q2

REPORT INFORMATION
  Report Type: 
  Country: None (occurrence: None)
  Receive Date: 20100521
  Receipt Date: 20100513
  Transmission Date: 20101027
  Serious: Yes (Death, Other)
  Sender: FDA-Public Use
  Company Number: US-CELGENEUS-163-21880-09120502

PATIENT
  Sex: Female
  Weight: 74.91 kg

DRUGS (19)
  1. REVLIMID [Suspect]
     Indication: NON-HODGKIN'S LYMPHOMA REFRACTORY
     Route: 048
     Dates: start: 20091109, end: 20091123
  2. REVLIMID [Suspect]
     Route: 048
     Dates: start: 20090101
  3. REVLIMID [Suspect]
     Route: 048
  4. REVLIMID [Suspect]
     Route: 048
  5. RITUXIMAB [Suspect]
     Route: 051
     Dates: start: 20090917
  6. ALDACTONE [Concomitant]
     Indication: ASCITES
     Route: 048
     Dates: start: 20010504
  7. ALLOPURINOL [Concomitant]
     Indication: PROPHYLAXIS
     Route: 048
     Dates: start: 20090902
  8. ASPIRIN [Concomitant]
     Route: 048
     Dates: start: 20090902, end: 20091120
  9. ASPIRIN [Concomitant]
     Route: 048
     Dates: start: 20091203
  10. COMPAZINE [Concomitant]
     Indication: PROPHYLAXIS
     Route: 048
     Dates: start: 20090401
  11. ESTRADIOL [Concomitant]
     Indication: HORMONE REPLACEMENT THERAPY
     Route: 048
     Dates: start: 20010504
  12. VICODIN [Concomitant]
     Indication: PAIN
     Dosage: 5-500 MG
     Route: 048
     Dates: start: 20090908
  13. ATIVAN [Concomitant]
     Indication: ANXIETY
     Route: 048
     Dates: start: 20090908
  14. MEGACE [Concomitant]
     Indication: APPETITE DISORDER
     Dosage: 400MG/10ML
     Route: 048
     Dates: start: 20091016
  15. ZOFRAN [Concomitant]
     Indication: PROPHYLAXIS
     Route: 048
     Dates: start: 20090401
  16. POTASSIUM PHOSPHATES [Concomitant]
     Indication: SUPPLEMENTATION THERAPY
     Route: 048
     Dates: start: 20090915
  17. PRILOSEC [Concomitant]
     Route: 048
     Dates: start: 20010504
  18. PROZAC [Concomitant]
     Indication: DEPRESSION
     Route: 048
     Dates: start: 20010504
  19. REGLAN [Concomitant]
     Indication: PROPHYLAXIS
     Route: 048
     Dates: start: 20010504

REACTIONS (2)
  - DEEP VEIN THROMBOSIS [None]
  - DISEASE PROGRESSION [None]
